FAERS Safety Report 5599531-0 (Version None)
Quarter: 2008Q1

REPORT INFORMATION
  Report Type: 
  Country: None (occurrence: None)
  Receive Date: 20080123
  Receipt Date: 20080114
  Transmission Date: 20080703
  Serious: Yes (Death)
  Sender: FDA-Public Use
  Company Number: US-JNJFOC-20070603971

PATIENT
  Sex: Female
  Weight: 75.3 kg

DRUGS (1)
  1. ORTHO EVRA [Suspect]
     Indication: CONTRACEPTION
     Route: 062

REACTIONS (7)
  - ADENOMYOSIS [None]
  - ARTERIOSCLEROSIS CORONARY ARTERY [None]
  - ENDOMETRIOSIS [None]
  - HEPATOSPLENOMEGALY [None]
  - HYPERPLASTIC CHOLECYSTOPATHY [None]
  - PULMONARY EMBOLISM [None]
  - RESPIRATORY ARREST [None]
